FAERS Safety Report 8388135-2 (Version None)
Quarter: 2012Q2

REPORT INFORMATION
  Report Type: 
  Country: None (occurrence: None)
  Receive Date: 20120525
  Receipt Date: 20120514
  Transmission Date: 20120825
  Serious: Yes (Death, Other)
  Sender: FDA-Public Use
  Company Number: DE-CELGENEUS-062-21880-11021473

PATIENT
  Age: 67 Year
  Sex: Male
  Weight: 79.5 kg

DRUGS (13)
  1. DEXAMETHASONE [Suspect]
     Dosage: 5.3333 MILLIGRAM
     Route: 048
     Dates: start: 20101101, end: 20101221
  2. REVLIMID [Suspect]
     Dosage: 25 MILLIGRAM
     Route: 048
     Dates: start: 20101101, end: 20101220
  3. DEXAMETHASONE [Suspect]
     Dosage: DOSE REDUCED (NOS)
     Route: 065
     Dates: start: 20110101
  4. BONDRONATE [Concomitant]
     Indication: MULTIPLE MYELOMA
  5. REVLIMID [Suspect]
     Dosage: DOSE REDUCED (NOS)
     Route: 048
     Dates: start: 20101201
  6. REVLIMID [Suspect]
     Dosage: DOSE REDUCED (NOS)
     Route: 048
     Dates: start: 20110101
  7. DEXAMETHASONE [Suspect]
     Route: 048
     Dates: start: 20101201, end: 20110204
  8. REVLIMID [Suspect]
     Dosage: 10 MILLIGRAM
     Route: 048
     Dates: start: 20101001
  9. DEXAMETHASONE [Suspect]
     Dosage: 1 MILLIGRAM
     Route: 048
     Dates: start: 20110111, end: 20110201
  10. ENOXAPARIN SODIUM [Concomitant]
     Indication: THROMBOSIS PROPHYLAXIS
     Dosage: 40 MILLIGRAM
     Route: 058
  11. REVLIMID [Suspect]
     Dosage: 10 MILLIGRAM
     Route: 048
     Dates: start: 20110111, end: 20110212
  12. DEXAMETHASONE [Suspect]
     Dosage: 20 MILLIGRAM
     Route: 065
     Dates: start: 20101001
  13. BONDRONATE [Concomitant]
     Indication: OSTEOLYSIS
     Dosage: .1333 MILLIGRAM
     Route: 041

REACTIONS (5)
  - MULTIPLE MYELOMA [None]
  - RENAL FAILURE [None]
  - CARDIAC DEATH [None]
  - SEPSIS [None]
  - CIRCULATORY COLLAPSE [None]
